FAERS Safety Report 4296597-5 (Version None)
Quarter: 2004Q1

REPORT INFORMATION
  Report Type: 
  Country: None (occurrence: None)
  Receive Date: 20040217
  Receipt Date: 20040203
  Transmission Date: 20041129
  Serious: Yes (Death, Hospitalization)
  Sender: FDA-Public Use
  Company Number: NL-GLAXOSMITHKLINE-B0322671A

PATIENT
  Age: 78 Year
  Sex: Female

DRUGS (2)
  1. TRANYLCYPROMINE [Suspect]
     Route: 065
  2. TRAMADOL HCL [Concomitant]
     Route: 065

REACTIONS (6)
  - ADVERSE EVENT [None]
  - CONDITION AGGRAVATED [None]
  - DEPRESSION [None]
  - GENERAL PHYSICAL HEALTH DETERIORATION [None]
  - TREATMENT NONCOMPLIANCE [None]
  - UNEVALUABLE EVENT [None]
